FAERS Safety Report 22989953 (Version 2)
Quarter: 2023Q4

REPORT INFORMATION
  Report Type: Report from Study
  Country: US (occurrence: US)
  Receive Date: 20230927
  Receipt Date: 20231124
  Transmission Date: 20240109
  Serious: Yes (Death)
  Sender: FDA-Public Use
  Company Number: US-002147023-NVSC2023US208092

PATIENT
  Age: 50 Year
  Sex: Female

DRUGS (1)
  1. KESIMPTA [Suspect]
     Active Substance: OFATUMUMAB
     Indication: Multiple sclerosis
     Dosage: 20 MG, OTHER (WEEK 0, 1, AND 2. THEN ADMINISTERED MONTHLY STARTING AT WEEK 4)
     Route: 058
     Dates: start: 20230711

REACTIONS (1)
  - Death [Fatal]

NARRATIVE: CASE EVENT DATE: 20230905
